FAERS Safety Report 19770273 (Version 1)
Quarter: 2021Q3

REPORT INFORMATION
  Report Type: Spontaneous
  Country: US (occurrence: US)
  Receive Date: 20210901
  Receipt Date: 20210901
  Transmission Date: 20211014
  Serious: Yes (Other)
  Sender: FDA-Public Use
  Company Number: US-SA-2021SA287045

PATIENT
  Age: 53 Year
  Sex: Male

DRUGS (1)
  1. ZANTAC [Suspect]
     Active Substance: RANITIDINE HYDROCHLORIDE
     Indication: DYSPEPSIA
     Dosage: 300 MG, FREQUENCY: OTHER
     Dates: start: 200601, end: 201401

REACTIONS (2)
  - Lung neoplasm malignant [Recovered/Resolved]
  - Bladder cancer [Unknown]

NARRATIVE: CASE EVENT DATE: 20110101
